FAERS Safety Report 9998162 (Version 1)
Quarter: 2014Q1

REPORT INFORMATION
  Report Type: Spontaneous
  Country: CN (occurrence: CN)
  Receive Date: 20140311
  Receipt Date: 20140311
  Transmission Date: 20141002
  Serious: Yes (Hospitalization)
  Sender: FDA-Public Use
  Company Number: PHHY2014CN026958

PATIENT
  Sex: Male

DRUGS (2)
  1. CEFTRIAXONE [Suspect]
     Route: 064
  2. METRONIDAZOLE [Suspect]
     Route: 064

REACTIONS (7)
  - Foetal distress syndrome [Unknown]
  - Intraventricular haemorrhage [Unknown]
  - Neonatal aspiration [Unknown]
  - Listeriosis [Unknown]
  - Pyrexia [Unknown]
  - Sepsis [Unknown]
  - Foetal exposure during pregnancy [Unknown]
